FAERS Safety Report 6286275-5 (Version None)
Quarter: 2009Q3

REPORT INFORMATION
  Report Type: 
  Country: None (occurrence: None)
  Receive Date: 20090728
  Receipt Date: 20090715
  Transmission Date: 20100115
  Serious: Yes (Disabling)
  Sender: FDA-Public Use
  Company Number: GB-PFIZER INC-2009240552

PATIENT
  Age: 38 Year

DRUGS (1)
  1. CHAMPIX [Suspect]
     Indication: SMOKING CESSATION THERAPY
     Dosage: 0.5 UG, UNK
     Route: 048
     Dates: start: 20090624, end: 20090627

REACTIONS (2)
  - ERYTHEMA [None]
  - RASH PAPULAR [None]
